FAERS Safety Report 7490229-0 (Version None)
Quarter: 2011Q2

REPORT INFORMATION
  Report Type: 
  Country: None (occurrence: None)
  Receive Date: 20110512
  Receipt Date: 20110421
  Transmission Date: 20111010
  Serious: Yes (Other)
  Sender: FDA-Public Use
  Company Number: GB-022519

PATIENT
  Age: 28 Day
  Sex: Male

DRUGS (6)
  1. BUSULFAN [Suspect]
     Indication: BONE MARROW CONDITIONING REGIMEN
  2. CAMPATH [Suspect]
     Indication: BONE MARROW CONDITIONING REGIMEN
  3. FLUDARABINE PHOSPHATE [Suspect]
     Indication: BONE MARROW CONDITIONING REGIMEN
  4. CYCLOSPORINE [Concomitant]
  5. (OTHERS) [Concomitant]
  6. CYCLOPHOSPHAMIDE [Suspect]
     Indication: BONE MARROW CONDITIONING REGIMEN

REACTIONS (2)
  - AGRANULOCYTOSIS [None]
  - ENGRAFT FAILURE [None]
